FAERS Safety Report 19339218 (Version 2)
Quarter: 2021Q2

REPORT INFORMATION
  Report Type: Spontaneous
  Country: US (occurrence: US)
  Receive Date: 20210530
  Receipt Date: 20210601
  Transmission Date: 20210717
  Serious: No
  Sender: FDA-Public Use
  Company Number: US-ORGANON-O2105USA002085

PATIENT
  Sex: Female
  Weight: 98.4 kg

DRUGS (1)
  1. NEXPLANON [Suspect]
     Active Substance: ETONOGESTREL
     Dosage: ONE EVERY THREE YEARS
     Route: 059
     Dates: start: 20190401

REACTIONS (4)
  - Localised infection [Unknown]
  - Complication of device removal [Not Recovered/Not Resolved]
  - Liposuction [Unknown]
  - Complication associated with device [Recovered/Resolved]
